FAERS Safety Report 8222824-5 (Version None)
Quarter: 2012Q1

REPORT INFORMATION
  Report Type: 
  Country: None (occurrence: None)
  Receive Date: 20120320
  Receipt Date: 20120306
  Transmission Date: 20120608
  Serious: Yes (Hospitalization)
  Sender: FDA-Public Use
  Company Number: FR-CELGENEUS-056-21880-11072992

PATIENT
  Sex: Male
  Weight: 94.3 kg

DRUGS (17)
  1. ACETAMINOPHEN [Concomitant]
     Dosage: 500 MILLIGRAM
     Route: 048
  2. LIDOCAINE [Concomitant]
     Route: 048
     Dates: start: 20110601
  3. COUMADIN [Concomitant]
     Dosage: .5 MILLIGRAM
     Route: 048
  4. ACETAMINOPHEN [Concomitant]
     Route: 065
  5. ACUPAN [Concomitant]
     Route: 065
  6. NEO RECORMON [Suspect]
     Route: 058
     Dates: start: 20110627, end: 20110710
  7. TRAMADOL HCL [Concomitant]
     Dosage: 100 MILLIGRAM
     Route: 048
  8. REVLIMID [Suspect]
     Dosage: 10 MILLIGRAM
     Route: 048
     Dates: start: 20110627, end: 20110710
  9. PREDNISONE TAB [Concomitant]
     Dosage: 20 MILLIGRAM
     Route: 048
  10. ULTRA-LEVURE [Concomitant]
     Route: 065
  11. OMEPRAZOLE [Concomitant]
     Dosage: 20 MILLIGRAM
     Route: 048
  12. SPIRIVA [Concomitant]
     Route: 065
  13. NEO RECORMON [Suspect]
     Indication: MYELODYSPLASTIC SYNDROME
     Dosage: 60000 IU (INTERNATIONAL UNIT)
     Route: 058
     Dates: start: 20110517, end: 20110615
  14. ESCITALOPRAM OXALATE [Concomitant]
     Dosage: 5 MILLIGRAM
     Route: 048
     Dates: start: 20090101
  15. REVLIMID [Suspect]
     Indication: MYELODYSPLASTIC SYNDROME
     Dosage: 10 MILLIGRAM
     Route: 048
     Dates: start: 20110517, end: 20110606
  16. PRAVASTATIN [Concomitant]
     Dosage: 20 MILLIGRAM
     Route: 048
  17. RED BLOOD CELLS [Concomitant]
     Route: 065

REACTIONS (13)
  - OSTEOMYELITIS [None]
  - DERMO-HYPODERMITIS [None]
  - ARTERIAL THROMBOSIS LIMB [None]
  - BURSITIS [None]
  - REFRACTORY ANAEMIA [None]
  - CONFUSIONAL STATE [None]
  - LOCALISED INFECTION [None]
  - TOE AMPUTATION [None]
  - MYELODYSPLASTIC SYNDROME [None]
  - EXTREMITY NECROSIS [None]
  - PERIPHERAL ARTERIAL OCCLUSIVE DISEASE [None]
  - INFECTED SKIN ULCER [None]
  - NEOPLASM PROGRESSION [None]
